FAERS Safety Report 9175613 (Version 2)
Quarter: 2013Q2

REPORT INFORMATION
  Report Type: Spontaneous
  Country: US (occurrence: US)
  Receive Date: 20120915
  Receipt Date: 20130506
  Transmission Date: 20140414
  Serious: Yes (Other)
  Sender: FDA-Public Use
  Company Number: US-009507513-1209USA003366

PATIENT
  Age: 49 Year
  Sex: Male

DRUGS (7)
  1. ISENTRESS [Suspect]
     Route: 048
  2. INTELENCE [Interacting]
     Route: 048
  3. INDOMETHACIN [Interacting]
  4. RITONAVIR [Interacting]
     Route: 048
  5. LERCANIDIPINE HYDROCHLORIDE [Interacting]
  6. PREZISTA [Interacting]
     Route: 048
  7. IRBESARTAN [Interacting]

REACTIONS (4)
  - Drug interaction [Unknown]
  - Nephropathy [Unknown]
  - Nephropathy toxic [Unknown]
  - Renal impairment [Unknown]
